FAERS Safety Report 9996553 (Version 1)
Quarter: 2014Q1

REPORT INFORMATION
  Report Type: Spontaneous
  Country: DE (occurrence: DE)
  Receive Date: 20140311
  Receipt Date: 20140311
  Transmission Date: 20141002
  Serious: Yes (Other)
  Sender: FDA-Public Use
  Company Number: DE-TEVA-466846GER

PATIENT
  Age: 8 Day
  Sex: Male

DRUGS (3)
  1. LAMOTRIGINE [Suspect]
     Route: 064
  2. LAMOTRIGINE [Suspect]
     Route: 063
  3. FOLS?URE [Concomitant]
     Route: 064

REACTIONS (4)
  - Liver disorder [Recovered/Resolved]
  - Feeding disorder neonatal [Recovered/Resolved]
  - Exposure during breast feeding [Recovered/Resolved]
  - Hydrocele [Unknown]
